FAERS Safety Report 16280225 (Version 2)
Quarter: 2019Q2

REPORT INFORMATION
  Report Type: Spontaneous
  Country: US (occurrence: US)
  Receive Date: 20190507
  Receipt Date: 20190611
  Transmission Date: 20190711
  Serious: Yes (Life-Threatening, Other)
  Sender: FDA-Public Use
  Company Number: US-GLAXOSMITHKLINE-US2019AMR079656

PATIENT
  Age: 37 Year
  Sex: Female
  Weight: 67.12 kg

DRUGS (1)
  1. NUCALA [Suspect]
     Active Substance: MEPOLIZUMAB
     Indication: ASTHMA
     Dosage: 100 MG, CYC, ONCE A MONTH
     Route: 058
     Dates: start: 20190226, end: 20190429

REACTIONS (5)
  - Wheezing [Unknown]
  - Dyspnoea [Unknown]
  - Throat tightness [Unknown]
  - Anaphylactic reaction [Recovered/Resolved]
  - Pruritus generalised [Unknown]

NARRATIVE: CASE EVENT DATE: 20190429
